FAERS Safety Report 19866294 (Version 3)
Quarter: 2023Q4

REPORT INFORMATION
  Report Type: Report from Study
  Country: US (occurrence: US)
  Receive Date: 20210921
  Receipt Date: 20231030
  Transmission Date: 20240109
  Serious: Yes (Other)
  Sender: FDA-Public Use
  Company Number: US-TAKEDA-US201804484

PATIENT
  Age: 60 Year
  Sex: Male

DRUGS (27)
  1. TEDUGLUTIDE [Suspect]
     Active Substance: TEDUGLUTIDE
     Indication: Short-bowel syndrome
     Dosage: 0.06 MILLIGRAM/KILOGRAM, QD
     Route: 065
     Dates: start: 20131212, end: 20160816
  2. TEDUGLUTIDE [Suspect]
     Active Substance: TEDUGLUTIDE
     Indication: Short-bowel syndrome
     Dosage: 0.06 MILLIGRAM/KILOGRAM, QD
     Route: 065
     Dates: start: 20131212, end: 20160816
  3. TEDUGLUTIDE [Suspect]
     Active Substance: TEDUGLUTIDE
     Indication: Short-bowel syndrome
     Dosage: 0.06 MILLIGRAM/KILOGRAM, QD
     Route: 065
     Dates: start: 20131212, end: 20160816
  4. TEDUGLUTIDE [Suspect]
     Active Substance: TEDUGLUTIDE
     Indication: Short-bowel syndrome
     Dosage: 0.06 MILLIGRAM/KILOGRAM, QD
     Route: 065
     Dates: start: 20131212, end: 20160816
  5. TEDUGLUTIDE [Suspect]
     Active Substance: TEDUGLUTIDE
     Dosage: 0.06 MILLIGRAM/KILOGRAM, QD
     Route: 065
     Dates: start: 20160817, end: 20160829
  6. TEDUGLUTIDE [Suspect]
     Active Substance: TEDUGLUTIDE
     Dosage: 0.06 MILLIGRAM/KILOGRAM, QD
     Route: 065
     Dates: start: 20160817, end: 20160829
  7. TEDUGLUTIDE [Suspect]
     Active Substance: TEDUGLUTIDE
     Dosage: 0.06 MILLIGRAM/KILOGRAM, QD
     Route: 065
     Dates: start: 20160817, end: 20160829
  8. TEDUGLUTIDE [Suspect]
     Active Substance: TEDUGLUTIDE
     Dosage: 0.06 MILLIGRAM/KILOGRAM, QD
     Route: 065
     Dates: start: 20160817, end: 20160829
  9. TEDUGLUTIDE [Suspect]
     Active Substance: TEDUGLUTIDE
     Dosage: 0.06 MILLIGRAM/KILOGRAM, QD
     Route: 065
     Dates: start: 20160830, end: 201707
  10. TEDUGLUTIDE [Suspect]
     Active Substance: TEDUGLUTIDE
     Dosage: 0.06 MILLIGRAM/KILOGRAM, QD
     Route: 065
     Dates: start: 20160830, end: 201707
  11. TEDUGLUTIDE [Suspect]
     Active Substance: TEDUGLUTIDE
     Dosage: 0.06 MILLIGRAM/KILOGRAM, QD
     Route: 065
     Dates: start: 20160830, end: 201707
  12. TEDUGLUTIDE [Suspect]
     Active Substance: TEDUGLUTIDE
     Dosage: 0.06 MILLIGRAM/KILOGRAM, QD
     Route: 065
     Dates: start: 20160830, end: 201707
  13. TEDUGLUTIDE [Suspect]
     Active Substance: TEDUGLUTIDE
     Dosage: 0.06 MILLIGRAM/KILOGRAM, QD
     Route: 065
     Dates: start: 20170724, end: 20181002
  14. TEDUGLUTIDE [Suspect]
     Active Substance: TEDUGLUTIDE
     Dosage: 0.06 MILLIGRAM/KILOGRAM, QD
     Route: 065
     Dates: start: 20170724, end: 20181002
  15. TEDUGLUTIDE [Suspect]
     Active Substance: TEDUGLUTIDE
     Dosage: 0.06 MILLIGRAM/KILOGRAM, QD
     Route: 065
     Dates: start: 20170724, end: 20181002
  16. TEDUGLUTIDE [Suspect]
     Active Substance: TEDUGLUTIDE
     Dosage: 0.06 MILLIGRAM/KILOGRAM, QD
     Route: 065
     Dates: start: 20170724, end: 20181002
  17. TEDUGLUTIDE [Suspect]
     Active Substance: TEDUGLUTIDE
     Dosage: 0.06 MILLIGRAM/KILOGRAM, QD
     Route: 065
     Dates: start: 20181203
  18. TEDUGLUTIDE [Suspect]
     Active Substance: TEDUGLUTIDE
     Dosage: 0.06 MILLIGRAM/KILOGRAM, QD
     Route: 065
     Dates: start: 20181203
  19. TEDUGLUTIDE [Suspect]
     Active Substance: TEDUGLUTIDE
     Dosage: 0.06 MILLIGRAM/KILOGRAM, QD
     Route: 065
     Dates: start: 20181203
  20. TEDUGLUTIDE [Suspect]
     Active Substance: TEDUGLUTIDE
     Dosage: 0.06 MILLIGRAM/KILOGRAM, QD
     Route: 065
     Dates: start: 20181203
  21. LOVENOX [Concomitant]
     Active Substance: ENOXAPARIN SODIUM
     Indication: Thrombosis prophylaxis
     Dosage: UNK
     Route: 065
  22. ELIQUIS [Concomitant]
     Active Substance: APIXABAN
     Indication: Thrombosis prophylaxis
     Dosage: UNK
  23. CODEINE PHOSPHATE [Concomitant]
     Active Substance: CODEINE PHOSPHATE
     Indication: Short-bowel syndrome
     Dosage: UNK
  24. CHOLECALCIFEROL [Concomitant]
     Active Substance: CHOLECALCIFEROL
     Indication: Vitamin D deficiency
     Dosage: 2000 INTERNATIONAL UNIT, QD
     Route: 048
     Dates: start: 20200528
  25. CHOLECALCIFEROL [Concomitant]
     Active Substance: CHOLECALCIFEROL
     Dosage: 5000 INTERNATIONAL UNIT, 1/WEEK
     Route: 048
     Dates: start: 20200326, end: 20200521
  26. LOTRISONE [Concomitant]
     Active Substance: BETAMETHASONE DIPROPIONATE\CLOTRIMAZOLE
     Indication: Stoma site abscess
     Dosage: 1 PERCENT, BID
     Route: 061
     Dates: start: 20210420
  27. WARFARIN SODIUM [Concomitant]
     Active Substance: WARFARIN SODIUM
     Indication: Anticoagulant therapy
     Dosage: 3 MILLIGRAM, TID
     Route: 048
     Dates: start: 20200310

REACTIONS (1)
  - Vascular device occlusion [Recovered/Resolved]

NARRATIVE: CASE EVENT DATE: 20180118
